FAERS Safety Report 6740178-8 (Version None)
Quarter: 2010Q2

REPORT INFORMATION
  Report Type: 
  Country: None (occurrence: None)
  Receive Date: 20100525
  Receipt Date: 20100517
  Transmission Date: 20101027
  Serious: Yes (Hospitalization)
  Sender: FDA-Public Use
  Company Number: A0789307A

PATIENT
  Age: 48 Year
  Sex: Male

DRUGS (1)
  1. AVANDAMET [Suspect]
     Indication: DIABETES MELLITUS
     Dosage: 1TAB TWICE PER DAY
     Route: 048
     Dates: start: 20030101, end: 20070522

REACTIONS (7)
  - AMNESIA [None]
  - ANXIETY [None]
  - CORONARY ARTERY BYPASS [None]
  - DEPRESSION [None]
  - DYSPNOEA [None]
  - MYOCARDIAL INFARCTION [None]
  - PROCEDURAL PAIN [None]
